FAERS Safety Report 5503113-6 (Version None)
Quarter: 2007Q4

REPORT INFORMATION
  Report Type: 
  Country: None (occurrence: None)
  Receive Date: 20071031
  Receipt Date: 20071024
  Transmission Date: 20080405
  Serious: Yes (Hospitalization)
  Sender: FDA-Public Use
  Company Number: US-SANOFI-SYNTHELABO-F03200700199

PATIENT
  Sex: Female

DRUGS (10)
  1. COLACE [Concomitant]
     Dosage: UNK
     Route: 048
  2. NEXIUM [Concomitant]
     Dosage: UNK
     Route: 048
  3. COMPAZINE [Concomitant]
     Dosage: UNK
     Route: 048
  4. ATENOLOL [Concomitant]
     Route: 048
  5. UNSPECIFIED DRUG [Concomitant]
     Dosage: UNK
     Route: 048
  6. OXYCODONE HCL [Concomitant]
     Dosage: UNK
     Route: 048
  7. CETUXIMAB [Suspect]
     Indication: HEPATIC NEOPLASM MALIGNANT
     Route: 042
     Dates: start: 20070927, end: 20070927
  8. CETUXIMAB [Suspect]
     Route: 042
  9. CAPECITABINE [Suspect]
     Indication: HEPATIC NEOPLASM MALIGNANT
     Route: 048
     Dates: start: 20070927, end: 20071005
  10. OXALIPLATIN [Suspect]
     Indication: HEPATIC NEOPLASM MALIGNANT
     Route: 042
     Dates: start: 20071004, end: 20071004

REACTIONS (7)
  - ASTHENIA [None]
  - DISEASE PROGRESSION [None]
  - DYSPNOEA [None]
  - FATIGUE [None]
  - MENTAL STATUS CHANGES [None]
  - NAUSEA [None]
  - VOMITING [None]
